FAERS Safety Report 17839690 (Version 1)
Quarter: 2020Q2

REPORT INFORMATION
  Report Type: Report from Study
  Country: FI (occurrence: FI)
  Receive Date: 20200529
  Receipt Date: 20200529
  Transmission Date: 20200714
  Serious: Yes (Other)
  Sender: FDA-Public Use
  Company Number: FI-MYLANLABS-2020M1052721

PATIENT
  Age: 19 Year
  Sex: Male

DRUGS (3)
  1. LEVOXIN [Concomitant]
     Active Substance: LEVOFLOXACIN
     Dosage: UNK
  2. LITHIUM. [Concomitant]
     Active Substance: LITHIUM
     Dosage: UNK
  3. LEPONEX [Suspect]
     Active Substance: CLOZAPINE
     Indication: AGGRESSION
     Dosage: 150 MILLIGRAM, QD
     Dates: start: 20200511

REACTIONS (6)
  - Carditis [Unknown]
  - C-reactive protein increased [Unknown]
  - Neutrophilia [Unknown]
  - Off label use [Unknown]
  - Pyrexia [Recovered/Resolved]
  - Leukocytosis [Unknown]

NARRATIVE: CASE EVENT DATE: 202005
